FAERS Safety Report 6528764-1 (Version None)
Quarter: 2009Q4

REPORT INFORMATION
  Report Type: 
  Country: None (occurrence: None)
  Receive Date: 20091231
  Receipt Date: 20091217
  Transmission Date: 20100525
  Serious: Yes (Hospitalization, Other)
  Sender: FDA-Public Use
  Company Number: AUR-APL-2009-01625

PATIENT
  Age: 67 Year
  Sex: Male

DRUGS (2)
  1. LAMOTRIGINE [Suspect]
     Indication: EPILEPSY
     Dosage: 200MG, DAILY, UNK
     Dates: start: 20040414, end: 20040521
  2. PHENOBARBITAL TAB [Suspect]
     Indication: EPILEPSY

REACTIONS (5)
  - CYTOLYTIC HEPATITIS [None]
  - DRUG RASH WITH EOSINOPHILIA AND SYSTEMIC SYMPTOMS [None]
  - INTERSTITIAL LUNG DISEASE [None]
  - PARASITE ALLERGY [None]
  - RENAL FAILURE [None]
